FAERS Safety Report 19069130 (Version 1)
Quarter: 2021Q1

REPORT INFORMATION
  Report Type: Spontaneous
  Country: CA (occurrence: CA)
  Receive Date: 20210329
  Receipt Date: 20210329
  Transmission Date: 20210420
  Serious: Yes (Death, Hospitalization)
  Sender: FDA-Public Use
  Company Number: CA-009507513-2103CAN006979

PATIENT
  Age: 78 Year
  Sex: Male
  Weight: 88 kg

DRUGS (2)
  1. CARBOPLATIN. [Concomitant]
     Active Substance: CARBOPLATIN
     Dosage: DOSAGE FORM: SOLUTION INTRAVENOUS
  2. KEYTRUDA [Suspect]
     Active Substance: PEMBROLIZUMAB
     Indication: NON-SMALL CELL LUNG CANCER METASTATIC
     Dosage: DOSAGE FORM: SOLUTION INTRAVENOUS; 180 MILLIGRAM, 1 EVERY 3 WEEKS
     Route: 042

REACTIONS (5)
  - Hyperthyroidism [Fatal]
  - Renal disorder [Fatal]
  - Myositis [Fatal]
  - Autoimmune disorder [Fatal]
  - Hepatitis [Fatal]
